FAERS Safety Report 20312453 (Version 1)
Quarter: 2022Q1

REPORT INFORMATION
  Report Type: Spontaneous
  Country: US (occurrence: None)
  Receive Date: 20220109
  Receipt Date: 20220109
  Transmission Date: 20220424
  Serious: Yes (Hospitalization)
  Sender: FDA-Public Use
  Company Number: None

PATIENT
  Age: 39 Year
  Sex: Female
  Weight: 54 kg

DRUGS (1)
  1. REGEN-COV [Suspect]
     Active Substance: CASIRIVIMAB\IMDEVIMAB
     Indication: COVID-19
     Dosage: OTHER FREQUENCY : ONCE;?
     Route: 058
     Dates: start: 20211222, end: 20211222

REACTIONS (9)
  - Mouth ulceration [None]
  - Conjunctivitis [None]
  - Dysuria [None]
  - Swelling [None]
  - Dysphagia [None]
  - Stevens-Johnson syndrome [None]
  - Oral mucosal exfoliation [None]
  - Drug reaction with eosinophilia and systemic symptoms [None]
  - Oesophageal disorder [None]

NARRATIVE: CASE EVENT DATE: 20220103
